FAERS Safety Report 5101267-7 (Version None)
Quarter: 2006Q3

REPORT INFORMATION
  Report Type: 
  Country: None (occurrence: None)
  Receive Date: 20060911
  Receipt Date: 20060904
  Transmission Date: 20061208
  Serious: Yes (Other)
  Sender: FDA-Public Use
  Company Number: JP-AVENTIS-200612734JP

PATIENT
  Age: 68 Year
  Sex: Male

DRUGS (3)
  1. LASIX [Suspect]
     Indication: ASCITES
  2. LASIX [Suspect]
  3. ALLOID [Concomitant]

REACTIONS (1)
  - STEVENS-JOHNSON SYNDROME [None]
